FAERS Safety Report 10252055 (Version 1)
Quarter: 2014Q2

REPORT INFORMATION
  Report Type: Spontaneous
  Country: FR (occurrence: FR)
  Receive Date: 20140623
  Receipt Date: 20140623
  Transmission Date: 20141212
  Serious: Yes (Hospitalization)
  Sender: FDA-Public Use
  Company Number: PHHY2014FR076283

PATIENT
  Age: 42 Year
  Sex: Female

DRUGS (1)
  1. ZOMETA [Suspect]
     Indication: HYPERCALCAEMIA OF MALIGNANCY
     Dosage: UNK UKN, UNK 12 INJECTIONS

REACTIONS (1)
  - Osteonecrosis [Unknown]
